FAERS Safety Report 7503612-1 (Version None)
Quarter: 2011Q2

REPORT INFORMATION
  Report Type: 
  Country: None (occurrence: None)
  Receive Date: 20110524
  Receipt Date: 20110524
  Transmission Date: 20111010
  Serious: Yes (Life-Threatening)
  Sender: FDA-Public Use
  Company Number: None

PATIENT
  Age: 58 Year
  Sex: Female
  Weight: 111.1313 kg

DRUGS (1)
  1. COPAXONE [Suspect]
     Indication: MULTIPLE SCLEROSIS
     Dosage: 20 MG/ 1 ML DAILY IM
     Route: 030
     Dates: start: 20110511, end: 20110511

REACTIONS (8)
  - POLLAKIURIA [None]
  - SKIN DISORDER [None]
  - INFLAMMATION [None]
  - RASH [None]
  - FEELING ABNORMAL [None]
  - VISION BLURRED [None]
  - MUSCULOSKELETAL DISORDER [None]
  - MOVEMENT DISORDER [None]
